FAERS Safety Report 5621078-3 (Version None)
Quarter: 2008Q1

REPORT INFORMATION
  Report Type: 
  Country: None (occurrence: None)
  Receive Date: 20080114
  Receipt Date: 20061219
  Transmission Date: 20080703
  Serious: Yes (Hospitalization)
  Sender: FDA-Public Use
  Company Number: A03200607633

PATIENT
  Age: 79 Year
  Sex: Female
  Weight: 75.73 kg

DRUGS (6)
  1. PLAVIX [Suspect]
     Indication: STENT PLACEMENT
     Dosage: 75 MG QD, ORAL
     Route: 048
     Dates: start: 20061101
  2. TELMISARTAN [Concomitant]
  3. ISOSORBIDE MONONITRATE [Concomitant]
  4. ACETYLSALICYLIC ACID SRT [Concomitant]
  5. GLIMEPIRIDE [Concomitant]
  6. VITAMINS [Concomitant]

REACTIONS (2)
  - GROIN PAIN [None]
  - HAEMATOMA [None]
